FAERS Safety Report 9193453 (Version 1)
Quarter: 2013Q1

REPORT INFORMATION
  Report Type: Report from Study
  Country: US (occurrence: US)
  Receive Date: 20130327
  Receipt Date: 20130327
  Transmission Date: 20140127
  Serious: Yes (Death)
  Sender: FDA-Public Use
  Company Number: US-ROCHE-1207230

PATIENT
  Age: 63 Year
  Sex: Female

DRUGS (4)
  1. HERCEPTIN [Suspect]
     Indication: BREAST CANCER
     Route: 065
  2. TAXOL [Concomitant]
  3. CYTOXAN [Concomitant]
  4. ADRIAMYCIN [Concomitant]

REACTIONS (1)
  - Death [Fatal]
